FAERS Safety Report 5604942-0 (Version None)
Quarter: 2008Q1

REPORT INFORMATION
  Report Type: 
  Country: None (occurrence: None)
  Receive Date: 20080128
  Receipt Date: 20080107
  Transmission Date: 20080703
  Serious: No
  Sender: FDA-Public Use
  Company Number: US-BOEHRINGER INGELHEIM PHARMACEUTICALS, INC.-2008-BP-00329BP

PATIENT
  Age: 85 Year
  Sex: Male

DRUGS (4)
  1. FLOMAX [Suspect]
     Indication: HYPERTONIC BLADDER
     Route: 048
     Dates: start: 20071101, end: 20071101
  2. FLOMAX [Suspect]
     Indication: INCONTINENCE
  3. TOPROL-XL [Concomitant]
     Indication: HYPERTENSION
  4. SANCTURA [Concomitant]
     Indication: HYPERTONIC BLADDER

REACTIONS (1)
  - INCONTINENCE [None]
